FAERS Safety Report 7357542-9 (Version None)
Quarter: 2011Q1

REPORT INFORMATION
  Report Type: 
  Country: None (occurrence: None)
  Receive Date: 20110317
  Receipt Date: 20110314
  Transmission Date: 20110831
  Serious: Yes (Hospitalization, Other)
  Sender: FDA-Public Use
  Company Number: US-ELI_LILLY_AND_COMPANY-US201011003393

PATIENT
  Sex: Female
  Weight: 117.46 kg

DRUGS (8)
  1. HUMULIN 70/30 [Suspect]
     Indication: DIABETES MELLITUS
     Dates: start: 20070101
  2. LYRICA [Concomitant]
  3. VICTOZA [Concomitant]
  4. LANTUS [Concomitant]
     Dosage: 40 U, EACH EVENING
  5. HUMALOG MIX 75/25 [Suspect]
     Dosage: UNK, AS NEEDED
     Dates: start: 20000101
  6. JANUMET [Concomitant]
     Dosage: 10000 MG, DAILY (1/D)
  7. SYNTHROID [Concomitant]
     Dosage: UNK, DAILY (1/D)
  8. BYETTA [Concomitant]

REACTIONS (2)
  - DYSPNOEA [None]
  - THYROID CANCER [None]
